FAERS Safety Report 26148982 (Version 1)
Quarter: 2025Q4

REPORT INFORMATION
  Report Type: Report from Study
  Country: EU (occurrence: EU)
  Receive Date: 20251212
  Receipt Date: 20251212
  Transmission Date: 20260117
  Serious: Yes (Other)
  Sender: ROCHE
  Company Number: EU-ROCHE-10000239452

PATIENT
  Age: 87 Year
  Sex: Male

DRUGS (3)
  1. FARICIMAB [Suspect]
     Active Substance: FARICIMAB
     Indication: Neovascular age-related macular degeneration
     Dosage: DOSE LAST STUDY DRUG ADMIN PRIOR AE IS 6 MG?TOTAL VOLUME PRIOR AE IS 0.05 ML, ?START DATE OF MOST RECENT DOSE OF STUDY DRUG?PRIOR TO AE 07-FEB-2025 AND 07-MAR-2025
     Dates: start: 20241129
  2. LEVOTHYROXINE SODIUM [Concomitant]
     Active Substance: LEVOTHYROXINE SODIUM
     Indication: Hypothyroidism
  3. RAMIPRIL [Concomitant]
     Active Substance: RAMIPRIL
     Indication: Hypertension

REACTIONS (5)
  - Periorbital pain [Recovered/Resolved]
  - Swelling of eyelid [Recovered/Resolved]
  - Visual impairment [Recovered/Resolved]
  - Retinal haemorrhage [Recovered/Resolved]
  - Retinal degeneration [Recovering/Resolving]

NARRATIVE: CASE EVENT DATE: 20250211
